FAERS Safety Report 10552545 (Version 2)
Quarter: 2014Q4

REPORT INFORMATION
  Report Type: Spontaneous
  Country: TW (occurrence: TW)
  Receive Date: 20141029
  Receipt Date: 20141119
  Transmission Date: 20150529
  Serious: Yes (Death, Other)
  Sender: FDA-Public Use
  Company Number: TW-CELGENE-TWN-2014104887

PATIENT
  Age: 84 Year
  Sex: Male

DRUGS (2)
  1. AZACITIDINE. [Suspect]
     Active Substance: AZACITIDINE
     Indication: MYELODYSPLASTIC SYNDROME
     Route: 041
  2. OXACILLIN [Concomitant]
     Active Substance: OXACILLIN SODIUM
     Indication: CELLULITIS
     Route: 041

REACTIONS (3)
  - Fatigue [Unknown]
  - Septic shock [Fatal]
  - Necrotising fasciitis [Unknown]
